FAERS Safety Report 12475773 (Version 1)
Quarter: 2016Q2

REPORT INFORMATION
  Report Type: Report from Study
  Country: US (occurrence: US)
  Receive Date: 20160617
  Receipt Date: 20160617
  Transmission Date: 20160815
  Serious: Yes (Hospitalization, Other)
  Sender: FDA-Public Use
  Company Number: US-GILEAD-2016-0210178

PATIENT
  Age: 52 Year
  Sex: Female

DRUGS (3)
  1. AMBRISENTAN [Suspect]
     Active Substance: AMBRISENTAN
     Indication: PRODUCT USED FOR UNKNOWN INDICATION
     Dosage: 10 MG, QD
     Route: 065
     Dates: start: 20130409
  2. ADCIRCA [Concomitant]
     Active Substance: TADALAFIL
  3. TYVASO [Concomitant]
     Active Substance: TREPROSTINIL

REACTIONS (13)
  - Weight decreased [Unknown]
  - Upper respiratory tract infection [Unknown]
  - Dyspnoea [Unknown]
  - Fluid overload [Unknown]
  - Rhinorrhoea [Unknown]
  - Cardiac failure [Unknown]
  - Hypotension [Unknown]
  - Decreased appetite [Unknown]
  - Cough [Unknown]
  - Blindness transient [Unknown]
  - Condition aggravated [Unknown]
  - Nasal congestion [Unknown]
  - Dizziness [Unknown]
